FAERS Safety Report 23626972 (Version 1)
Quarter: 2024Q1

REPORT INFORMATION
  Report Type: Report from Study
  Country: US (occurrence: US)
  Receive Date: 20240313
  Receipt Date: 20240313
  Transmission Date: 20240409
  Serious: No
  Sender: FDA-Public Use
  Company Number: US-SPRINGWORKS THERAPEUTICS-SW-001006

PATIENT
  Age: 16 Year
  Sex: Female
  Weight: 53.2 kg

DRUGS (12)
  1. NIROGACESTAT [Suspect]
     Active Substance: NIROGACESTAT
     Indication: Desmoid tumour
     Dosage: 140 MILLIGRAM, BID
     Route: 048
     Dates: start: 20230614
  2. HYDROXYZINE [Concomitant]
     Active Substance: HYDROXYZINE HYDROCHLORIDE
     Indication: Insomnia
     Dosage: 25 MILLIGRAM AS NEEDED, 1/2-1 TABLETS UP TO 3 TIMES PER DAY
     Dates: start: 20220518
  3. HYDROXYZINE [Concomitant]
     Active Substance: HYDROXYZINE HYDROCHLORIDE
     Indication: Anxiety
  4. SERTRALINE [Concomitant]
     Active Substance: SERTRALINE HYDROCHLORIDE
     Indication: Generalised anxiety disorder
     Dosage: 2 TABLETS, X1 PER DAY
     Dates: start: 20220504
  5. THEANINE [Concomitant]
     Active Substance: THEANINE
     Indication: Generalised anxiety disorder
     Dosage: 1 CAPSULE EVERY 12 HOURS
     Dates: start: 20220601
  6. CHOLECALCIFEROL [Concomitant]
     Active Substance: CHOLECALCIFEROL
     Indication: Product used for unknown indication
  7. OXYCODONE [Concomitant]
     Active Substance: OXYCODONE\OXYCODONE HYDROCHLORIDE
     Indication: Pain
     Dosage: 0.1 MG/KG, PRN EVERY 4 HOURS
     Dates: start: 20220525
  8. ONDANSETRON [Concomitant]
     Active Substance: ONDANSETRON
     Indication: Nausea
     Dosage: 8 MILLIGRAM, PRN EVERY 8 HOURS
     Dates: start: 20230206
  9. ONDANSETRON [Concomitant]
     Active Substance: ONDANSETRON
     Indication: Vomiting
  10. KETOCONAZOLE [Concomitant]
     Active Substance: KETOCONAZOLE
     Indication: Product used for unknown indication
  11. CHLORHEXIDINE GLUCONATE [Concomitant]
     Active Substance: CHLORHEXIDINE GLUCONATE
     Indication: Product used for unknown indication
  12. TRIAMCINOLONE [Concomitant]
     Active Substance: TRIAMCINOLONE
     Indication: Product used for unknown indication

REACTIONS (13)
  - Hot flush [Recovered/Resolved]
  - Rash pustular [Not Recovered/Not Resolved]
  - Rash maculo-papular [Recovered/Resolved]
  - Eosinophilia [Recovered/Resolved]
  - Rhinitis allergic [Recovered/Resolved]
  - Blood creatinine increased [Recovered/Resolved]
  - Hypertension [Recovered/Resolved]
  - Dry skin [Not Recovered/Not Resolved]
  - Haematuria [Recovered/Resolved]
  - Eosinophilia [Recovered/Resolved]
  - Haematuria [Unknown]
  - Eosinophilia [Unknown]
  - Nausea [Not Recovered/Not Resolved]

NARRATIVE: CASE EVENT DATE: 20230620
